FAERS Safety Report 6972272-0 (Version None)
Quarter: 2010Q3

REPORT INFORMATION
  Report Type: 
  Country: None (occurrence: None)
  Receive Date: 20100909
  Receipt Date: 20100831
  Transmission Date: 20110219
  Serious: Yes (Other)
  Sender: FDA-Public Use
  Company Number: US-JNJFOC-20100902244

PATIENT
  Sex: Female

DRUGS (1)
  1. LEVAQUIN [Suspect]
     Indication: UPPER RESPIRATORY TRACT INFECTION
     Dosage: 8 HOURS
     Route: 048

REACTIONS (6)
  - ASTHENIA [None]
  - DYSPNOEA [None]
  - INSOMNIA [None]
  - MEDICATION ERROR [None]
  - NECK PAIN [None]
  - OVERDOSE [None]
